FAERS Safety Report 23141533 (Version 2)
Quarter: 2024Q3

REPORT INFORMATION
  Report Type: Spontaneous
  Country: US (occurrence: US)
  Receive Date: 20231103
  Receipt Date: 20240808
  Transmission Date: 20241017
  Serious: No
  Sender: OTSUKA
  Company Number: US-OTSUKA-2023_024895

PATIENT
  Age: 39 Year
  Sex: Female
  Weight: 49.89 kg

DRUGS (2)
  1. ABILIFY MAINTENA [Suspect]
     Active Substance: ARIPIPRAZOLE
     Indication: Bipolar disorder
     Dosage: 300 MG
     Route: 065
     Dates: start: 202004, end: 202307
  2. ABILIFY ASIMTUFII [Suspect]
     Active Substance: ARIPIPRAZOLE
     Indication: Bipolar disorder
     Dosage: 720 MG
     Route: 065
     Dates: start: 20230720

REACTIONS (4)
  - Injection site nodule [Unknown]
  - Injection site pain [Unknown]
  - Therapy change [Unknown]
  - Underdose [Unknown]

NARRATIVE: CASE EVENT DATE: 20230701
